FAERS Safety Report 6052076-6 (Version None)
Quarter: 2009Q1

REPORT INFORMATION
  Report Type: 
  Country: None (occurrence: None)
  Receive Date: 20090126
  Receipt Date: 20090119
  Transmission Date: 20090719
  Serious: Yes (Hospitalization)
  Sender: FDA-Public Use
  Company Number: US-ROXANE LABORATORIES, INC.-2009-RO-00083RO

PATIENT
  Age: 21 Year
  Sex: Male
  Weight: 79 kg

DRUGS (3)
  1. MORPHINE [Suspect]
  2. MORPHINE [Suspect]
  3. METHYLNALTREXONE [Concomitant]
     Indication: GASTRIC DISORDER
     Route: 042

REACTIONS (1)
  - GASTRIC DISORDER [None]
